FAERS Safety Report 16335185 (Version 2)
Quarter: 2019Q3

REPORT INFORMATION
  Report Type: Spontaneous
  Country: IT (occurrence: IT)
  Receive Date: 20190521
  Receipt Date: 20190701
  Transmission Date: 20191004
  Serious: Yes (Other)
  Sender: FDA-Public Use
  Company Number: IT-AUROBINDO-AUR-APL-2019-028223

PATIENT

DRUGS (1)
  1. IBUPROFEN FILM-COATED TABLETS [Suspect]
     Active Substance: IBUPROFEN
     Indication: PRODUCT USED FOR UNKNOWN INDICATION
     Dosage: 30 DOSAGE FORM, TOTAL
     Route: 048
     Dates: start: 20190328, end: 20190328

REACTIONS (3)
  - Drug abuse [Recovered/Resolved]
  - Confusional state [Recovered/Resolved]
  - Confabulation [Recovered/Resolved]

NARRATIVE: CASE EVENT DATE: 20190328
